FAERS Safety Report 8458507-6 (Version None)
Quarter: 2012Q2

REPORT INFORMATION
  Report Type: 
  Country: None (occurrence: None)
  Receive Date: 20120622
  Receipt Date: 20120611
  Transmission Date: 20120825
  Serious: Yes (Hospitalization)
  Sender: FDA-Public Use
  Company Number: US-ELI_LILLY_AND_COMPANY-US201112000678

PATIENT
  Sex: Female
  Weight: 27.9 kg

DRUGS (4)
  1. FORTEO [Suspect]
     Indication: OSTEOPOROSIS
     Dosage: 20 UG, QD
     Route: 058
     Dates: start: 20111027
  2. FORTEO [Suspect]
     Dosage: 20 UG, QD
     Route: 058
     Dates: start: 20111027
  3. FORTEO [Suspect]
     Dosage: 20 UG, QD
     Route: 058
  4. PANTOPRAZOLE [Concomitant]

REACTIONS (6)
  - OESOPHAGEAL ULCER [None]
  - INJECTION SITE HAEMORRHAGE [None]
  - SINUS DISORDER [None]
  - INJECTION SITE HAEMATOMA [None]
  - HEADACHE [None]
  - OESOPHAGITIS [None]
